FAERS Safety Report 25271566 (Version 1)
Quarter: 2025Q2

REPORT INFORMATION
  Report Type: Spontaneous
  Country: IL (occurrence: IL)
  Receive Date: 20250506
  Receipt Date: 20250506
  Transmission Date: 20250716
  Serious: Yes (Hospitalization, Other)
  Sender: AMGEN
  Company Number: IL-AMGEN-ISRSP2025085539

PATIENT

DRUGS (1)
  1. ADALIMUMAB [Suspect]
     Active Substance: ADALIMUMAB
     Indication: Crohn^s disease
     Route: 065

REACTIONS (8)
  - Unevaluable event [Unknown]
  - Abscess [Unknown]
  - Adverse event [Unknown]
  - Loss of therapeutic response [Unknown]
  - Drug level decreased [Unknown]
  - Treatment failure [Unknown]
  - Drug specific antibody present [Unknown]
  - Headache [Unknown]
